FAERS Safety Report 6865806-8 (Version None)
Quarter: 2010Q3

REPORT INFORMATION
  Report Type: 
  Country: None (occurrence: None)
  Receive Date: 20100720
  Receipt Date: 20100707
  Transmission Date: 20110219
  Serious: Yes (Hospitalization)
  Sender: FDA-Public Use
  Company Number: 015495

PATIENT
  Sex: Female

DRUGS (16)
  1. CERTOLIZUMAB PEGOL (CERTOLIZUMAB PEGOL) [Suspect]
     Indication: RHEUMATOID ARTHRITIS
     Dosage: (200 MG 1X/2 WEEKS SUBCUTANEOUS)
     Route: 058
     Dates: start: 20091210, end: 20100707
  2. SALAZOSULFAPYRIDINE [Concomitant]
  3. PREDNISOLONE [Concomitant]
  4. AURANOFIN [Concomitant]
  5. BUCILLAMINE [Concomitant]
  6. RISEDRONATE SODIUM [Concomitant]
  7. LOXOPROFEN SODIUM [Concomitant]
  8. FAMOTIDINE [Concomitant]
  9. ISONIAZID [Concomitant]
  10. ATORVASTATIN CALCIUM [Concomitant]
  11. THEOPHYLLINE [Concomitant]
  12. SENNOSIDE /00571902/ [Concomitant]
  13. AZULENE SODIUM SULFONATE [Concomitant]
  14. DIFLUCORTOLONE VALERATE [Concomitant]
  15. OLOPATADINE HYDROCHLORIDE [Concomitant]
  16. AMPHOTERICIN B [Concomitant]

REACTIONS (1)
  - BENIGN NEOPLASM OF SKIN [None]
